FAERS Safety Report 25595688 (Version 1)
Quarter: 2025Q3

REPORT INFORMATION
  Report Type: Spontaneous
  Country: EU (occurrence: EU)
  Receive Date: 20250723
  Receipt Date: 20250723
  Transmission Date: 20251020
  Serious: Yes (Other)
  Sender: CHEPLAPHARM
  Company Number: None

PATIENT
  Age: 69 Year
  Sex: Male

DRUGS (18)
  1. OLANZAPINE [Suspect]
     Active Substance: OLANZAPINE
     Indication: Agitation
     Dosage: DAILY DOSE: 2.5 MILLIGRAM
     Route: 048
     Dates: start: 20250527, end: 20250604
  2. OLANZAPINE [Suspect]
     Active Substance: OLANZAPINE
     Indication: Agitation
     Dosage: DAILY DOSE: 5 MILLIGRAM
     Route: 048
     Dates: start: 20250604, end: 20250606
  3. OLANZAPINE [Suspect]
     Active Substance: OLANZAPINE
     Indication: Agitation
     Dosage: 5 MG-0-10 MG?DAILY DOSE: 15 MILLIGRAM
     Route: 048
     Dates: start: 20250608
  4. LOXAPINE [Suspect]
     Active Substance: LOXAPINE
     Indication: Agitation
     Route: 048
     Dates: start: 20250608, end: 20250608
  5. LOXAPINE [Suspect]
     Active Substance: LOXAPINE
     Indication: Agitation
     Route: 030
     Dates: start: 20250608, end: 20250608
  6. LORAZEPAM [Suspect]
     Active Substance: LORAZEPAM
     Indication: Agitation
     Dosage: 2 MG OR 3 MG/DAY
     Route: 048
     Dates: start: 20250527, end: 20250608
  7. LORAZEPAM [Suspect]
     Active Substance: LORAZEPAM
     Indication: Respiratory arrest
     Dosage: 2 MG OR 3 MG/DAY
     Route: 048
     Dates: start: 20250527, end: 20250608
  8. MIANSERIN HYDROCHLORIDE [Suspect]
     Active Substance: MIANSERIN HYDROCHLORIDE
     Indication: Anxiety
     Dosage: DAILY DOSE: 10 MILLIGRAM
     Route: 048
     Dates: start: 20250608, end: 20250608
  9. LAMICTAL [Concomitant]
     Active Substance: LAMOTRIGINE
     Dates: start: 20250521
  10. LAMICTAL [Concomitant]
     Active Substance: LAMOTRIGINE
     Dates: start: 20250608
  11. LAMICTAL [Concomitant]
     Active Substance: LAMOTRIGINE
     Dates: start: 20250609
  12. LAMICTAL [Concomitant]
     Active Substance: LAMOTRIGINE
  13. COVERAM [Concomitant]
     Active Substance: AMLODIPINE\PERINDOPRIL
  14. BISOPROLOL FUMARATE\HYDROCHLOROTHIAZIDE [Concomitant]
     Active Substance: BISOPROLOL FUMARATE\HYDROCHLOROTHIAZIDE
  15. CALCIUM CARBONATE\CHOLECALCIFEROL [Concomitant]
     Active Substance: CALCIUM CARBONATE\CHOLECALCIFEROL
  16. COLCHICINE [Concomitant]
     Active Substance: COLCHICINE
  17. ALLOPURINOL [Concomitant]
     Active Substance: ALLOPURINOL
  18. KARDEGIC [Concomitant]
     Active Substance: ASPIRIN DL-LYSINE

REACTIONS (4)
  - Coma [Recovered/Resolved]
  - Renal impairment [Recovered/Resolved]
  - Hypotension [Unknown]
  - Off label use [Recovered/Resolved]

NARRATIVE: CASE EVENT DATE: 20250527
